FAERS Safety Report 17114592 (Version 1)
Quarter: 2019Q4

REPORT INFORMATION
  Report Type: Spontaneous
  Country: SE (occurrence: SE)
  Receive Date: 20191205
  Receipt Date: 20191205
  Transmission Date: 20200122
  Serious: Yes (Other)
  Sender: FDA-Public Use
  Company Number: SE-ACCORD-163642

PATIENT
  Age: 75 Year
  Sex: Male

DRUGS (15)
  1. ATORVASTATIN [Concomitant]
     Active Substance: ATORVASTATIN
  2. OXASCAND [Concomitant]
     Active Substance: OXAZEPAM
     Dates: start: 20181201
  3. ZYTIGA [Concomitant]
     Active Substance: ABIRATERONE ACETATE
  4. STILNOCT [Concomitant]
     Active Substance: ZOLPIDEM TARTRATE
     Dates: start: 20190420
  5. IMOVANE [Concomitant]
     Active Substance: ZOPICLONE
  6. OMEPRAZOLE. [Concomitant]
     Active Substance: OMEPRAZOLE
  7. XALCOM [Concomitant]
     Active Substance: LATANOPROST\TIMOLOL
  8. TROMBYL [Concomitant]
     Active Substance: ASPIRIN
  9. NOVOMIX [Concomitant]
     Active Substance: INSULIN ASPART
  10. ALENDRONATE SODIUM/ALENDRONIC ACID [Concomitant]
     Active Substance: ALENDRONATE SODIUM
  11. SUSCARD [Concomitant]
     Active Substance: NITROGLYCERIN
  12. LEUPRORELIN/LEUPRORELIN ACETATE [Concomitant]
     Active Substance: LEUPROLIDE ACETATE
     Dates: start: 20181201
  13. KALCIPOS-D [Concomitant]
     Active Substance: CALCIUM CARBONATE\CHOLECALCIFEROL
  14. SPIRONOLACTONE. [Suspect]
     Active Substance: SPIRONOLACTONE
     Indication: PERIPHERAL SWELLING
     Dosage: 25 MG 1/DAG
     Route: 048
     Dates: start: 20190514, end: 20190709
  15. PREDNISOLONE. [Concomitant]
     Active Substance: PREDNISOLONE

REACTIONS (1)
  - Prostatic specific antigen increased [Recovering/Resolving]

NARRATIVE: CASE EVENT DATE: 20190624
